FAERS Safety Report 10537667 (Version 1)
Quarter: 2014Q4

REPORT INFORMATION
  Report Type: Report from Study
  Country: AR (occurrence: AR)
  Receive Date: 20141023
  Receipt Date: 20141023
  Transmission Date: 20150529
  Serious: Yes (Other)
  Sender: FDA-Public Use
  Company Number: PHHY2014AR138269

PATIENT
  Sex: Male

DRUGS (2)
  1. HYDROXYUREA. [Concomitant]
     Active Substance: HYDROXYUREA
     Indication: IRON OVERLOAD
     Dosage: 3 ML, Q8H
     Route: 065
  2. EXJADE [Suspect]
     Active Substance: DEFERASIROX
     Indication: IRON OVERLOAD
     Dosage: 1500 MG, QD (2 TABLETS OF 500 MG AND 2 OF 250 MG)
     Route: 048
     Dates: start: 201105

REACTIONS (1)
  - Pain [Unknown]
